FAERS Safety Report 6316251-5 (Version None)
Quarter: 2009Q3

REPORT INFORMATION
  Report Type: 
  Country: None (occurrence: None)
  Receive Date: 20090819
  Receipt Date: 20090819
  Transmission Date: 20100115
  Serious: Yes (Hospitalization)
  Sender: FDA-Public Use
  Company Number: None

PATIENT
  Age: 73 Year
  Sex: Female

DRUGS (10)
  1. CETUXIMAB [Suspect]
     Indication: PANCREATIC CARCINOMA
     Dosage: 354 MG IV
     Route: 042
     Dates: start: 20090310
  2. GEMCITABINE [Suspect]
     Indication: PANCREATIC CARCINOMA
     Dosage: 1328 MG IV
     Route: 042
     Dates: start: 20090310
  3. OXALIPLATIN [Suspect]
     Indication: PANCREATIC CARCINOMA
     Dosage: 133 MG IV
     Route: 042
     Dates: start: 20090311
  4. TOPROL-XL [Concomitant]
  5. METFORMIN HCL [Concomitant]
  6. EXFORGE [Concomitant]
  7. MAGNESIUM SULFATE [Concomitant]
  8. IMODIUM [Concomitant]
  9. PANCREASE [Concomitant]
  10. LAMOTIL [Concomitant]

REACTIONS (4)
  - DEHYDRATION [None]
  - DIARRHOEA [None]
  - DRUG INEFFECTIVE [None]
  - GASTROENTERITIS [None]
